FAERS Safety Report 6843632-3 (Version None)
Quarter: 2010Q2

REPORT INFORMATION
  Report Type: 
  Country: None (occurrence: None)
  Receive Date: 20100629
  Receipt Date: 20100407
  Transmission Date: 20101027
  Serious: No
  Sender: FDA-Public Use
  Company Number: US-WYE-H14586810

PATIENT
  Age: 70 Year
  Sex: Female
  Weight: 57.66 kg

DRUGS (5)
  1. PRISTIQ [Suspect]
     Indication: SLEEP DISORDER
     Dosage: 50 MG 1X PER 1 DAY : 100 MG 1X PER 1 DAY
     Dates: start: 20100331, end: 20100401
  2. PRISTIQ [Suspect]
     Indication: SLEEP DISORDER
     Dosage: 50 MG 1X PER 1 DAY : 100 MG 1X PER 1 DAY
     Dates: start: 20100401
  3. ASPIRIN [Concomitant]
  4. ESTRADIOL [Concomitant]
  5. NEURONTIN [Concomitant]

REACTIONS (3)
  - DRUG INEFFECTIVE [None]
  - DYSPEPSIA [None]
  - PALPITATIONS [None]
